FAERS Safety Report 9688956 (Version 1)
Quarter: 2013Q4

REPORT INFORMATION
  Report Type: Spontaneous
  Country: US (occurrence: US)
  Receive Date: 20131114
  Receipt Date: 20131114
  Transmission Date: 20140711
  Serious: Yes (Hospitalization)
  Sender: FDA-Public Use
  Company Number: US-GLAXOSMITHKLINE-A1049204A

PATIENT
  Age: 54 Year
  Sex: Male

DRUGS (7)
  1. ADVAIR [Suspect]
     Indication: ASTHMA
     Dosage: 1PUFF TWICE PER DAY
     Route: 055
     Dates: start: 2000
  2. PREDNISONE [Suspect]
     Indication: ASTHMA
     Dosage: 5MG PER DAY
  3. SINGULAIR [Suspect]
     Indication: PRODUCT USED FOR UNKNOWN INDICATION
     Route: 065
  4. ALLEGRA [Suspect]
     Indication: PRODUCT USED FOR UNKNOWN INDICATION
     Route: 065
  5. PROAIR HFA [Concomitant]
     Route: 055
  6. NEBULIZER [Concomitant]
  7. PNEUMONIA VACCINE [Concomitant]

REACTIONS (12)
  - Pneumonia [Recovered/Resolved with Sequelae]
  - Septic shock [Recovered/Resolved with Sequelae]
  - Pneumothorax [Recovered/Resolved with Sequelae]
  - Apparent death [Recovered/Resolved with Sequelae]
  - Resuscitation [Recovered/Resolved with Sequelae]
  - Disability [Recovered/Resolved with Sequelae]
  - Dyspnoea [Recovered/Resolved with Sequelae]
  - Procedural pain [Recovered/Resolved with Sequelae]
  - Obstruction [Recovered/Resolved with Sequelae]
  - Drug hypersensitivity [Recovered/Resolved with Sequelae]
  - Surgery [Recovered/Resolved with Sequelae]
  - Pain [Recovered/Resolved with Sequelae]
